FAERS Safety Report 21590911 (Version 1)
Quarter: 2022Q4

REPORT INFORMATION
  Report Type: Spontaneous
  Country: US (occurrence: None)
  Receive Date: 20221111
  Receipt Date: 20221111
  Transmission Date: 20230113
  Serious: Yes (Other)
  Sender: FDA-Public Use
  Company Number: None

PATIENT
  Age: 37 Year
  Sex: Female
  Weight: 49.5 kg

DRUGS (4)
  1. SUMATRIPTAN [Suspect]
     Active Substance: SUMATRIPTAN
     Indication: Migraine
     Dosage: OTHER QUANTITY : 2 INJECTION(S);?FREQUENCY : AS NEEDED;?
     Route: 058
     Dates: start: 20221022, end: 20221022
  2. Sumatriptan pill as needed [Concomitant]
  3. VITAMINS [Concomitant]
     Active Substance: VITAMINS
  4. COENZYME Q10 [Concomitant]
     Active Substance: DIETARY SUPPLEMENT\UBIDECARENONE

REACTIONS (6)
  - Dizziness [None]
  - Asthenia [None]
  - Hypokinesia [None]
  - Communication disorder [None]
  - Injection site swelling [None]
  - Injection site inflammation [None]

NARRATIVE: CASE EVENT DATE: 20221022
